FAERS Safety Report 8244468-1 (Version None)
Quarter: 2012Q1

REPORT INFORMATION
  Report Type: 
  Country: None (occurrence: None)
  Receive Date: 20120329
  Receipt Date: 20120326
  Transmission Date: 20120608
  Serious: Yes (Hospitalization, Other)
  Sender: FDA-Public Use
  Company Number: US-AMGEN-USASP2012011935

PATIENT
  Age: 59 Year
  Sex: Female
  Weight: 78.912 kg

DRUGS (6)
  1. IRON [Concomitant]
  2. PROLIA [Suspect]
     Indication: OSTEOPOROSIS POSTMENOPAUSAL
     Route: 058
     Dates: start: 20120217
  3. SYNTHROID [Concomitant]
  4. CALCIUM CARBONATE [Concomitant]
     Route: 042
  5. AGGRENOX [Concomitant]
  6. VITAMIN D [Concomitant]
     Dosage: 50000 IU, QWK
     Route: 048

REACTIONS (6)
  - TETANY [None]
  - URINE CALCIUM DECREASED [None]
  - HYPOCALCAEMIA [None]
  - VISION BLURRED [None]
  - HYPOPHOSPHATAEMIA [None]
  - MUSCLE CONTRACTURE [None]
